FAERS Safety Report 15081250 (Version 1)
Quarter: 2018Q2

REPORT INFORMATION
  Report Type: Spontaneous
  Country: US (occurrence: US)
  Receive Date: 20180628
  Receipt Date: 20180628
  Transmission Date: 20180711
  Serious: No
  Sender: FDA-Public Use
  Company Number: US-ACCORD-063202

PATIENT
  Age: 60 Year
  Sex: Female
  Weight: 63.5 kg

DRUGS (1)
  1. CLONAZEPAM ACCORD [Suspect]
     Active Substance: CLONAZEPAM
     Indication: ANXIETY
     Dosage: FREQUENCY: QD??STRENGTH: 0.5 MG
     Route: 048

REACTIONS (4)
  - Feeling abnormal [Unknown]
  - Product substitution issue [Unknown]
  - Incorrect dose administered [Unknown]
  - Dyspepsia [Unknown]
